FAERS Safety Report 5469390-5 (Version None)
Quarter: 2007Q3

REPORT INFORMATION
  Report Type: 
  Country: None (occurrence: None)
  Receive Date: 20070927
  Receipt Date: 20070921
  Transmission Date: 20080115
  Serious: Yes (Hospitalization)
  Sender: FDA-Public Use
  Company Number: PHEH2007US10263

PATIENT
  Age: 65 Year
  Sex: Female
  Weight: 67.573 kg

DRUGS (1)
  1. TEKTURNA [Suspect]
     Indication: HYPERTENSION
     Dosage: 150 MG, QD
     Route: 048
     Dates: start: 20070515, end: 20070627

REACTIONS (6)
  - BLOOD AMYLASE INCREASED [None]
  - COMPUTERISED TOMOGRAM ABNORMAL [None]
  - INFLAMMATION [None]
  - LIPASE INCREASED [None]
  - PANCREATIC ENZYMES INCREASED [None]
  - PANCREATITIS [None]
